FAERS Safety Report 11186588 (Version 1)
Quarter: 2015Q2

REPORT INFORMATION
  Report Type: Report from Study
  Country: SE (occurrence: SE)
  Receive Date: 20150613
  Receipt Date: 20150613
  Transmission Date: 20150821
  Serious: Yes (Other)
  Sender: FDA-Public Use
  Company Number: PHHY2015SE070391

PATIENT
  Age: 30 Year

DRUGS (1)
  1. GLIVEC [Suspect]
     Active Substance: IMATINIB MESYLATE
     Indication: CHRONIC MYELOID LEUKAEMIA
     Dosage: UNK
     Route: 065
     Dates: end: 201504

REACTIONS (1)
  - Lung infiltration [Unknown]
